FAERS Safety Report 17184621 (Version 6)
Quarter: 2020Q4

REPORT INFORMATION
  Report Type: Spontaneous
  Country: IN (occurrence: IN)
  Receive Date: 20191220
  Receipt Date: 20201203
  Transmission Date: 20210113
  Serious: Yes (Life-Threatening, Hospitalization)
  Sender: FDA-Public Use
  Company Number: IN-CELGENEUS-IND-20191207197

PATIENT
  Age: 60 Year
  Sex: Male

DRUGS (10)
  1. MEDI4736 (DURVALUMAB) [Suspect]
     Active Substance: DURVALUMAB
     Dosage: 1500 MILLIGRAM
     Route: 042
     Dates: start: 20191207, end: 20191207
  2. CARBOPLATIN. [Concomitant]
     Active Substance: CARBOPLATIN
     Dosage: 372 MILLIGRAM
     Route: 042
     Dates: start: 20191025, end: 20191025
  3. MEDI4736 (DURVALUMAB) [Suspect]
     Active Substance: DURVALUMAB
     Indication: NON-SMALL CELL LUNG CANCER
     Dosage: 1500 MILLIGRAM
     Route: 042
     Dates: start: 20191116, end: 20191116
  4. CARBOPLATIN. [Concomitant]
     Active Substance: CARBOPLATIN
     Indication: NON-SMALL CELL LUNG CANCER
     Dosage: 372 MILLIGRAM
     Route: 042
     Dates: start: 20191116, end: 20191116
  5. CARBOPLATIN. [Concomitant]
     Active Substance: CARBOPLATIN
     Dosage: 372 MILLIGRAM
     Route: 042
     Dates: start: 20191207, end: 20191207
  6. ABRAXANE [Suspect]
     Active Substance: PACLITAXEL
     Indication: NON-SMALL CELL LUNG CANCER
     Dosage: 130 MILLIGRAM
     Route: 042
     Dates: start: 20191025, end: 20191207
  7. ABRAXANE [Suspect]
     Active Substance: PACLITAXEL
     Dosage: 129 MILLIGRAM
     Route: 042
     Dates: start: 20200101, end: 20200123
  8. MEDI4736 (DURVALUMAB) [Suspect]
     Active Substance: DURVALUMAB
     Dosage: 1500 MILLIGRAM
     Route: 042
     Dates: start: 20191025, end: 20191025
  9. CARBOPLATIN. [Concomitant]
     Active Substance: CARBOPLATIN
     Dosage: 372 MILLIGRAM
     Route: 042
     Dates: start: 20200108, end: 20200108
  10. ABRAXANE [Suspect]
     Active Substance: PACLITAXEL
     Dosage: 130 MILLIGRAM
     Route: 042
     Dates: start: 20191224, end: 20191224

REACTIONS (5)
  - Pneumonitis [Recovered/Resolved]
  - Neutropenia [Recovered/Resolved]
  - Chest pain [Recovered/Resolved]
  - Abdominal pain upper [Recovered/Resolved]
  - Pyrexia [Recovered/Resolved]

NARRATIVE: CASE EVENT DATE: 20191213
